FAERS Safety Report 4574962-6 (Version None)
Quarter: 2005Q1

REPORT INFORMATION
  Report Type: 
  Country: None (occurrence: None)
  Receive Date: 20050208
  Receipt Date: 20050127
  Transmission Date: 20050727
  Serious: Yes (Hospitalization)
  Sender: FDA-Public Use
  Company Number: CH-JNJFOC-20050103751

PATIENT
  Sex: Female

DRUGS (13)
  1. HALDOL DECANOATE [Suspect]
     Route: 030
  2. HALDOL DECANOATE [Suspect]
     Route: 030
  3. FLUPHENAZINE HCL [Interacting]
     Route: 049
  4. FLUPHENAZINE HCL [Interacting]
     Route: 049
  5. FLUPHENAZINE HCL [Interacting]
     Route: 049
  6. FLUPHENAZINE HCL [Interacting]
     Route: 049
  7. FLUPHENAZINE HCL [Interacting]
     Route: 049
  8. FLUPHENAZINE HCL [Interacting]
     Route: 049
  9. FLUPHENAZINE HCL [Interacting]
     Route: 049
  10. HALDOL [Concomitant]
     Indication: DRUG USE FOR UNKNOWN INDICATION
     Dosage: TAKEN IN THE MORNING
     Route: 049
  11. AKINETON RET [Concomitant]
     Route: 049
  12. AKINETON RET [Concomitant]
     Route: 049
  13. MELLERIL [Concomitant]
     Dosage: AT NIGHT SINCE SEVERAL MONTHS BUT NOT TAKEN REGULARLY.

REACTIONS (6)
  - BLOOD PROLACTIN INCREASED [None]
  - BREAST PAIN [None]
  - DRUG INTERACTION [None]
  - GALACTORRHOEA [None]
  - MENSTRUAL DISORDER [None]
  - PSYCHOTIC DISORDER [None]
